FAERS Safety Report 14163541 (Version 9)
Quarter: 2019Q1

REPORT INFORMATION
  Report Type: Report from Study
  Country: US (occurrence: US)
  Receive Date: 20171106
  Receipt Date: 20190322
  Transmission Date: 20190417
  Serious: Yes (Hospitalization)
  Sender: FDA-Public Use
  Company Number: US-ACTELION-A-US2017-161914

PATIENT
  Age: 19 Year
  Sex: Male

DRUGS (4)
  1. ADCIRCA [Suspect]
     Active Substance: TADALAFIL
     Indication: PRODUCT USED FOR UNKNOWN INDICATION
     Dosage: UNK
     Route: 065
     Dates: end: 20171222
  2. UPTRAVI [Suspect]
     Active Substance: SELEXIPAG
     Indication: PULMONARY ARTERIAL HYPERTENSION
     Dosage: 1600 MCG, BID
     Route: 048
     Dates: start: 20170616
  3. OXYGEN. [Concomitant]
     Active Substance: OXYGEN
  4. OPSUMIT [Suspect]
     Active Substance: MACITENTAN
     Indication: PULMONARY ARTERIAL HYPERTENSION
     Dosage: 10 MG, QD
     Route: 048
     Dates: start: 20170630

REACTIONS (17)
  - Depression [Unknown]
  - Influenza [Recovered/Resolved]
  - Chest pain [Unknown]
  - Product dose omission [Unknown]
  - Suicidal ideation [Unknown]
  - Cough [Recovered/Resolved]
  - Lethargy [Unknown]
  - Oxygen therapy [Unknown]
  - Dyspnoea [Unknown]
  - Disorientation [Unknown]
  - Unresponsive to stimuli [Unknown]
  - Incoherent [Unknown]
  - Oxygen saturation decreased [Unknown]
  - Respiration abnormal [Unknown]
  - Loss of consciousness [Unknown]
  - Cognitive disorder [Unknown]
  - Peripheral swelling [Recovered/Resolved]

NARRATIVE: CASE EVENT DATE: 20171023
